FAERS Safety Report 5085147-1 (Version None)
Quarter: 2006Q3

REPORT INFORMATION
  Report Type: 
  Country: None (occurrence: None)
  Receive Date: 20060817
  Receipt Date: 20060809
  Transmission Date: 20061208
  Serious: Yes (Hospitalization)
  Sender: FDA-Public Use
  Company Number: 2006BI008900

PATIENT
  Age: 41 Year
  Sex: Male

DRUGS (4)
  1. AVONEX [Suspect]
     Indication: MULTIPLE SCLEROSIS
     Dosage: 30 UG;QW;IM
     Route: 030
     Dates: start: 20050315
  2. BLOOD THINNER (NOS) [Concomitant]
  3. ROXANOL [Concomitant]
  4. ATIVAN [Concomitant]

REACTIONS (2)
  - PNEUMONIA [None]
  - RESPIRATORY DISORDER [None]
